FAERS Safety Report 20177915 (Version 2)
Quarter: 2022Q1

REPORT INFORMATION
  Report Type: Report from Study
  Country: DE (occurrence: DE)
  Receive Date: 20211213
  Receipt Date: 20220124
  Transmission Date: 20220424
  Serious: Yes (Death, Hospitalization, Other)
  Sender: FDA-Public Use
  Company Number: DE-BRISTOL-MYERS SQUIBB COMPANY-BMS-2021-071991

PATIENT
  Age: 85 Year
  Sex: Female
  Weight: 56 kg

DRUGS (17)
  1. NIVOLUMAB [Suspect]
     Active Substance: NIVOLUMAB
     Indication: Metastatic malignant melanoma
     Dosage: 360 MILLIGRAM
     Route: 042
     Dates: start: 20210608, end: 20210630
  2. IBUPROFEN [Concomitant]
     Active Substance: IBUPROFEN
     Indication: Product used for unknown indication
     Dosage: 1800 MILLIGRAM
     Route: 048
     Dates: start: 20210521
  3. ZOPICLONE [Concomitant]
     Active Substance: ZOPICLONE
     Indication: Product used for unknown indication
     Dosage: 7.5 MILLIGRAM
     Route: 048
     Dates: start: 20210526
  4. POLYETHYLENE GLYCOLS [Concomitant]
     Active Substance: POLYETHYLENE GLYCOLS
     Indication: Product used for unknown indication
     Dosage: 1 DOSAGE FORM = 3 UNIT NOS
     Route: 048
     Dates: start: 20210526
  5. IRBESARTAN [Concomitant]
     Active Substance: IRBESARTAN
     Indication: Product used for unknown indication
     Dosage: 225 MILLIGRAM
     Route: 048
     Dates: start: 20050101
  6. OMEPRAZOLE [Concomitant]
     Active Substance: OMEPRAZOLE
     Indication: Product used for unknown indication
     Dosage: 40 MILLIGRAM
     Route: 048
     Dates: start: 20210511
  7. METAMIZOLE [Concomitant]
     Active Substance: METAMIZOLE
     Indication: Product used for unknown indication
     Dosage: 1 DOSAGE FORM = 160 UNIT NOS
     Route: 048
     Dates: start: 20210526
  8. FENTANYL [Concomitant]
     Active Substance: FENTANYL
     Indication: Product used for unknown indication
     Dosage: 1 DOSAGE FORM= 25, EVERY 3 DAYS
     Route: 062
     Dates: start: 20210531, end: 20210721
  9. FENTANYL [Concomitant]
     Active Substance: FENTANYL
     Dosage: 37.5 MICROGRAM
     Route: 062
     Dates: start: 20210722
  10. MORPHINE HYDROCHLORIDE [Concomitant]
     Active Substance: MORPHINE HYDROCHLORIDE
     Indication: Product used for unknown indication
     Dosage: 1 DOSAGE FORM = 8 UNIT NOS (AS NEEDED)
     Route: 048
     Dates: start: 20210526
  11. HALOPERIDOL [HALOPERIDOL LACTATE] [Concomitant]
     Indication: Product used for unknown indication
     Dosage: 1 DOSAGE FORM = 15 UNIT NOS
     Route: 048
     Dates: start: 20210618
  12. COMIRNATY [Concomitant]
     Active Substance: TOZINAMERAN
     Indication: Prophylaxis
     Dosage: UNK
     Route: 030
     Dates: start: 20210615
  13. ENOXAPARIN [Concomitant]
     Active Substance: ENOXAPARIN
     Indication: Product used for unknown indication
     Dosage: 1 DOSAGE FORM = 4000 UNIT NOS
     Route: 058
     Dates: start: 20210722
  14. DIMENHYDRINATE [Concomitant]
     Active Substance: DIMENHYDRINATE
     Indication: Product used for unknown indication
     Dosage: 186 MILLIGRAM
     Route: 042
     Dates: start: 20210722
  15. LATANOPROST [Concomitant]
     Active Substance: LATANOPROST
     Indication: Glaucoma
     Dosage: 1 DOSAGE FORM = 1 UNIT NOS
     Route: 001
     Dates: start: 20210722
  16. CALCILAC [CALCIUM CARBONATE;COLECALCIFEROL] [Concomitant]
     Indication: Product used for unknown indication
     Dosage: 1 DOSAGE FORM = 2 UNIT NOS
     Route: 048
     Dates: start: 20210722
  17. POTASSIUM CHLORIDE [Concomitant]
     Active Substance: POTASSIUM CHLORIDE
     Indication: Product used for unknown indication
     Dosage: 1 DOSAGE FORM = 2 UNIT NOS
     Route: 048
     Dates: start: 20210722

REACTIONS (2)
  - Death [Fatal]
  - Myocarditis [Not Recovered/Not Resolved]

NARRATIVE: CASE EVENT DATE: 20210722
